FAERS Safety Report 12077755 (Version 1)
Quarter: 2016Q1

REPORT INFORMATION
  Report Type: Spontaneous
  Country: IT (occurrence: IT)
  Receive Date: 20160215
  Receipt Date: 20160215
  Transmission Date: 20160526
  Serious: Yes (Hospitalization)
  Sender: FDA-Public Use
  Company Number: PHHY2016IT018292

PATIENT
  Age: 84 Year
  Sex: Male

DRUGS (1)
  1. DICLOFENAC [Suspect]
     Active Substance: DICLOFENAC
     Indication: FLANK PAIN
     Dosage: 1 DF, UNK
     Route: 030
     Dates: start: 20160201, end: 20160206

REACTIONS (5)
  - Confusional state [Unknown]
  - Aortic aneurysm [Unknown]
  - Acute kidney injury [Unknown]
  - Oliguria [Unknown]
  - Renal cyst [Unknown]

NARRATIVE: CASE EVENT DATE: 20160206
